FAERS Safety Report 5538027-9 (Version None)
Quarter: 2007Q4

REPORT INFORMATION
  Report Type: 
  Country: None (occurrence: None)
  Receive Date: 20071207
  Receipt Date: 20071122
  Transmission Date: 20080405
  Serious: Yes (Death)
  Sender: FDA-Public Use
  Company Number: TW-BOEHRINGER INGELHEIM PHARMACEUTICALS, INC.-2007-DE-06919GD

PATIENT
  Age: 45 Year
  Sex: Female

DRUGS (9)
  1. BUDESONIDE [Suspect]
     Indication: ASTHMA
  2. FENOTEROL [Suspect]
     Indication: ASTHMA
     Dosage: 2 INHALATIONS AS NEEDED
     Route: 055
  3. IPRATROPIUM BROMIDE [Suspect]
     Indication: ASTHMA
     Dosage: 1 INHALATION
     Route: 055
  4. HYDROCORTISONE [Suspect]
     Indication: ASTHMA
     Route: 042
  5. TERBUTALINE SULFATE [Suspect]
     Indication: ASTHMA
     Dosage: 1 INHALATION
     Route: 055
  6. AMINOPHYLLINE [Suspect]
     Indication: ASTHMA
  7. AMINOPHYLLINE [Suspect]
  8. SALMETEROL [Suspect]
     Indication: ASTHMA
     Route: 055
  9. OXYGEN [Concomitant]
     Indication: ASTHMA

REACTIONS (5)
  - ASTHMA [None]
  - CIRCULATORY COLLAPSE [None]
  - DRUG INEFFECTIVE [None]
  - DYSPNOEA [None]
  - RESPIRATORY ARREST [None]
